FAERS Safety Report 13975076 (Version 3)
Quarter: 2019Q4

REPORT INFORMATION
  Report Type: Report from Study
  Country: None (occurrence: AR)
  Receive Date: 20170915
  Receipt Date: 20191129
  Transmission Date: 20200122
  Serious: Yes (Other)
  Sender: FDA-Public Use
  Company Number: AR-ABBVIE-17K-007-2101345-00

PATIENT
  Age: 62 Year
  Sex: Female

DRUGS (3)
  1. LOSARTAN POTASSIUM. [Concomitant]
     Active Substance: LOSARTAN POTASSIUM
     Indication: HYPERTENSION
  2. HUMIRA [Suspect]
     Active Substance: ADALIMUMAB
     Indication: PSORIASIS
  3. HUMIRA [Suspect]
     Active Substance: ADALIMUMAB
     Indication: PSORIATIC ARTHROPATHY
     Route: 058
     Dates: start: 20110902, end: 201702

REACTIONS (15)
  - Abdominal injury [Recovered/Resolved]
  - Cardiac disorder [Not Recovered/Not Resolved]
  - Cerebral ischaemia [Not Recovered/Not Resolved]
  - Arteriosclerosis coronary artery [Unknown]
  - Pain in extremity [Unknown]
  - Fatigue [Unknown]
  - Coronary artery occlusion [Unknown]
  - Chest pain [Unknown]
  - Temperature intolerance [Unknown]
  - Labyrinthitis [Recovered/Resolved]
  - Skin disorder [Unknown]
  - Contusion [Unknown]
  - Hypertension [Recovering/Resolving]
  - Arterial injury [Unknown]
  - Back pain [Unknown]

NARRATIVE: CASE EVENT DATE: 2017
